FAERS Safety Report 21678271 (Version 2)
Quarter: 2023Q1

REPORT INFORMATION
  Report Type: Spontaneous
  Country: NL (occurrence: NL)
  Receive Date: 20221203
  Receipt Date: 20230309
  Transmission Date: 20230417
  Serious: Yes (Other)
  Sender: FDA-Public Use
  Company Number: NL-MLMSERVICE-20221115-3918515-1

PATIENT
  Age: 65 Year
  Sex: Male

DRUGS (4)
  1. CISPLATIN [Suspect]
     Active Substance: CISPLATIN
     Indication: Mantle cell lymphoma stage III
     Dosage: ADMINISTERED OVER 24 H AS A DOSE OF 177 MG (100 MG/M2) DISSOLVED IN 577 ML OF 0.9% SALINE
     Dates: start: 201904
  2. SALINE [Concomitant]
     Active Substance: SODIUM CHLORIDE
     Dosage: (100 MG/M2, ACCORD HEALTHCARE, AHMEDABAD, INDIA) DISSOLVED IN 577 ML OF 0.9% SALINE
     Dates: start: 201904
  3. CYTARABINE [Concomitant]
     Active Substance: CYTARABINE
     Indication: Mantle cell lymphoma stage III
     Dates: start: 201904
  4. RITUXIMAB [Concomitant]
     Active Substance: RITUXIMAB
     Indication: Mantle cell lymphoma stage III
     Dates: start: 201904

REACTIONS (7)
  - Wound infection bacterial [Recovered/Resolved]
  - Administration site extravasation [Recovered/Resolved]
  - Soft tissue necrosis [Recovered/Resolved]
  - Klebsiella infection [Recovered/Resolved]
  - Chemical phlebitis [Recovered/Resolved]
  - Citrobacter infection [Recovered/Resolved]
  - Off label use [Unknown]

NARRATIVE: CASE EVENT DATE: 20190401
